FAERS Safety Report 11047188 (Version 1)
Quarter: 2015Q2

REPORT INFORMATION
  Report Type: Spontaneous
  Country: HR (occurrence: HR)
  Receive Date: 20150420
  Receipt Date: 20150420
  Transmission Date: 20150821
  Serious: Yes (Other)
  Sender: FDA-Public Use
  Company Number: HR-TEVA-555735ISR

PATIENT
  Age: 64 Year
  Sex: Female

DRUGS (5)
  1. MARTEFARIN [Concomitant]
     Active Substance: WARFARIN
     Indication: ARRHYTHMIA
     Route: 048
     Dates: start: 2013
  2. BRUFEN [Suspect]
     Active Substance: IBUPROFEN
     Route: 048
     Dates: start: 201408, end: 201408
  3. KLAVOCIN BID TABLETE 1 G [Suspect]
     Active Substance: AMOXICILLIN\CLAVULANIC ACID
     Indication: EAR INFECTION
     Dosage: 1 DOSAGE FORMS DAILY;
     Route: 048
     Dates: start: 201408, end: 201408
  4. LUXETA [Suspect]
     Active Substance: SERTRALINE HYDROCHLORIDE
     Indication: DEPRESSION
     Dosage: 50 MILLIGRAM DAILY; FORM OF ADMIN: TABLET, OTHER
     Route: 048
     Dates: start: 201408, end: 201408
  5. RYTMONORM [Concomitant]
     Active Substance: PROPAFENONE
     Indication: ARRHYTHMIA
     Dosage: 450 MILLIGRAM DAILY;
     Route: 048
     Dates: start: 2010

REACTIONS (3)
  - Melaena [Recovered/Resolved]
  - Faeces discoloured [Recovered/Resolved]
  - Gastroenteritis [Recovered/Resolved]

NARRATIVE: CASE EVENT DATE: 20140810
